FAERS Safety Report 23499582 (Version 1)
Quarter: 2024Q1

REPORT INFORMATION
  Report Type: Other
  Country: NZ (occurrence: NZ)
  Receive Date: 20240208
  Receipt Date: 20240208
  Transmission Date: 20240409
  Serious: Yes (Other)
  Sender: FDA-Public Use
  Company Number: NZ-TASMAN PHARMA, INC.-2024TSM00055

PATIENT
  Sex: Male

DRUGS (5)
  1. CLOZAPINE [Suspect]
     Active Substance: CLOZAPINE
  2. AMLODIPINE [Concomitant]
     Active Substance: AMLODIPINE BESYLATE
  3. METFORMIN [Concomitant]
     Active Substance: METFORMIN HYDROCHLORIDE
  4. BENSERAZIDE HYDROCHLORIDE\LEVODOPA [Concomitant]
     Active Substance: BENSERAZIDE HYDROCHLORIDE\LEVODOPA
  5. LEVETIRACETAM [Concomitant]
     Active Substance: LEVETIRACETAM

REACTIONS (5)
  - Subarachnoid haemorrhage [Unknown]
  - Fall [Unknown]
  - Decreased appetite [Unknown]
  - Troponin T increased [Unknown]
  - Sedation [Unknown]
